FAERS Safety Report 19910219 (Version 1)
Quarter: 2021Q4

REPORT INFORMATION
  Report Type: Spontaneous
  Country: SE (occurrence: SE)
  Receive Date: 20211004
  Receipt Date: 20211004
  Transmission Date: 20220303
  Serious: Yes (Other)
  Sender: FDA-Public Use
  Company Number: SE-ROCHE-2924872

PATIENT
  Sex: Female

DRUGS (1)
  1. KADCYLA [Suspect]
     Active Substance: ADO-TRASTUZUMAB EMTANSINE
     Indication: Product used for unknown indication
     Route: 065

REACTIONS (10)
  - Oral mucosal blistering [Unknown]
  - Oropharyngeal blistering [Unknown]
  - Feeding disorder [Unknown]
  - Malaise [Unknown]
  - White blood cell count abnormal [Unknown]
  - Alopecia [Unknown]
  - Fatigue [Unknown]
  - Headache [Unknown]
  - Metastases to central nervous system [Unknown]
  - Swelling [Unknown]
